FAERS Safety Report 18402570 (Version 1)
Quarter: 2020Q4

REPORT INFORMATION
  Report Type: Spontaneous
  Country: GB (occurrence: GB)
  Receive Date: 20201020
  Receipt Date: 20201020
  Transmission Date: 20210114
  Serious: Yes (Hospitalization, Other)
  Sender: FDA-Public Use
  Company Number: GB-AUROBINDO-AUR-APL-2020-052476

PATIENT
  Age: 78 Year

DRUGS (10)
  1. CALCIUM;COLECALCIFEROL [Concomitant]
     Active Substance: CALCIUM\CHOLECALCIFEROL
     Indication: PRODUCT USED FOR UNKNOWN INDICATION
     Dosage: 2 DOSAGE FORM, ONCE A DAY (400UNIT/1.5G)
     Route: 048
  2. DIORALYTE [Concomitant]
     Active Substance: CITRIC ACID MONOHYDRATE\DEXTROSE\POTASSIUM CATION\SODIUM CHLORIDE
     Indication: PRODUCT USED FOR UNKNOWN INDICATION
     Dosage: 10 DOSAGE FORM (IN 1 LITRE TO BE SIPPED THROUGHOUT THE DAY)
     Route: 048
  3. ATORVASTATIN [Concomitant]
     Active Substance: ATORVASTATIN
     Indication: PRODUCT USED FOR UNKNOWN INDICATION
     Dosage: 10 MILLIGRAM, ONCE A DAY
     Route: 048
  4. CODEINE [Concomitant]
     Active Substance: CODEINE
     Indication: PRODUCT USED FOR UNKNOWN INDICATION
     Dosage: 240 MILLIGRAM, ONCE A DAY
     Route: 048
  5. LANSOPRAZOLE. [Concomitant]
     Active Substance: LANSOPRAZOLE
     Indication: PRODUCT USED FOR UNKNOWN INDICATION
     Dosage: 60 MILLIGRAM, ONCE A DAY
     Route: 048
  6. LOPERAMIDE [Concomitant]
     Active Substance: LOPERAMIDE
     Indication: PRODUCT USED FOR UNKNOWN INDICATION
     Dosage: 16 MILLIGRAM, ONCE A DAY
     Route: 048
  7. SODIUM ALGINATE [Concomitant]
     Active Substance: SODIUM ALGINATE
     Indication: PRODUCT USED FOR UNKNOWN INDICATION
     Dosage: UNK UNK, 10-20 ML, FOUR TIMES/DAY
     Route: 048
  8. LISINOPRIL TABLET [Suspect]
     Active Substance: LISINOPRIL
     Indication: PRODUCT USED FOR UNKNOWN INDICATION
     Dosage: 5 MILLIGRAM, ONCE A DAY
     Route: 048
     Dates: end: 202009
  9. PREDNISOLONE. [Concomitant]
     Active Substance: PREDNISOLONE
     Indication: PRODUCT USED FOR UNKNOWN INDICATION
     Dosage: UNK, 5MG AND 10MG ALTERNATE DAYS.
     Route: 048
  10. POTASSIUM CARBONATE [Concomitant]
     Active Substance: POTASSIUM CARBONATE
     Indication: PRODUCT USED FOR UNKNOWN INDICATION
     Dosage: UNK UNK, FOUR TIMES/DAY, 10-20 ML
     Route: 048

REACTIONS (2)
  - Hypophagia [Unknown]
  - Acute kidney injury [Recovering/Resolving]

NARRATIVE: CASE EVENT DATE: 20200922
